FAERS Safety Report 6963029-5 (Version None)
Quarter: 2010Q3

REPORT INFORMATION
  Report Type: 
  Country: None (occurrence: None)
  Receive Date: 20100902
  Receipt Date: 20100826
  Transmission Date: 20110219
  Serious: Yes (Hospitalization, Other)
  Sender: FDA-Public Use
  Company Number: US-BAXTER-2010BH022018

PATIENT
  Age: 69 Year
  Sex: Male

DRUGS (3)
  1. DIANEAL [Suspect]
     Indication: PERITONEAL DIALYSIS
     Route: 033
     Dates: start: 20100101, end: 20100817
  2. DIANEAL [Suspect]
     Indication: PERITONEAL DIALYSIS
     Route: 033
     Dates: start: 20100601, end: 20100817
  3. REGULAR INSULIN [Concomitant]
     Indication: DIABETES MELLITUS
     Route: 065

REACTIONS (2)
  - DIABETIC COMA [None]
  - PERITONITIS BACTERIAL [None]
